FAERS Safety Report 9017371 (Version 1)
Quarter: 2013Q1

REPORT INFORMATION
  Report Type: Spontaneous
  Country: US (occurrence: US)
  Receive Date: 20130117
  Receipt Date: 20130117
  Transmission Date: 20140127
  Serious: Yes (Hospitalization, Other)
  Sender: FDA-Public Use
  Company Number: US-BAYER-2013-004524

PATIENT
  Age: 32 Year
  Sex: Female
  Weight: 135.1 kg

DRUGS (11)
  1. YAZ [Suspect]
  2. YASMIN [Suspect]
  3. METFORMIN [Concomitant]
  4. SPIRONOLACTONE [Concomitant]
  5. TUMS [CALCIUM CARBONATE] [Concomitant]
  6. MULTIVITAMIN [Concomitant]
  7. GUAIFENESIN [Concomitant]
  8. LORTAB [Concomitant]
  9. ALBUTEROL [Concomitant]
     Indication: COUGH
     Dosage: 0.083MG, 3-4 TIMES PER DAY
     Route: 045
  10. CIPROFLOXACIN [Concomitant]
     Dosage: 500 MG BID [TIMES] 10 D (DAY)
  11. TYLENOL [Concomitant]
     Indication: PAIN

REACTIONS (2)
  - Cholecystitis chronic [None]
  - Deep vein thrombosis [Recovered/Resolved]
